FAERS Safety Report 5424957-5 (Version None)
Quarter: 2007Q3

REPORT INFORMATION
  Report Type: 
  Country: None (occurrence: None)
  Receive Date: 20070824
  Receipt Date: 20070823
  Transmission Date: 20080115
  Serious: Yes (Other)
  Sender: FDA-Public Use
  Company Number: A0676082A

PATIENT
  Sex: Male

DRUGS (1)
  1. AVODART [Suspect]
     Indication: MICTURITION DISORDER
     Route: 065

REACTIONS (2)
  - BREAST CANCER [None]
  - BREAST SWELLING [None]
